FAERS Safety Report 8601130-0 (Version None)
Quarter: 2012Q3

REPORT INFORMATION
  Report Type: 
  Country: None (occurrence: None)
  Receive Date: 20120806
  Receipt Date: 20120806
  Transmission Date: 20120928
  Serious: Yes (Other)
  Sender: FDA-Public Use
  Company Number: None

PATIENT
  Age: 55 Year
  Sex: Male
  Weight: 69.8539 kg

DRUGS (1)
  1. AMOXICILLIN [Suspect]
     Dosage: 500 MG MOUTH
     Route: 048

REACTIONS (4)
  - DYSSTASIA [None]
  - MOUTH HAEMORRHAGE [None]
  - ABDOMINAL PAIN UPPER [None]
  - GASTRITIS [None]
